FAERS Safety Report 9200747 (Version 1)
Quarter: 2013Q1

REPORT INFORMATION
  Report Type: Spontaneous
  Country: US (occurrence: None)
  Receive Date: 20130328
  Receipt Date: 20130328
  Transmission Date: 20140127
  Serious: Yes (Hospitalization)
  Sender: FDA-Public Use
  Company Number: None

PATIENT
  Age: 83 Year
  Sex: Female
  Weight: 59 kg

DRUGS (7)
  1. RIVAROXABAN [Suspect]
     Indication: ATRIAL FIBRILLATION
     Route: 048
  2. ALENDRONATE [Concomitant]
  3. AMLODIPINE [Concomitant]
  4. EZETIMIBE [Concomitant]
  5. ASPIRIN [Concomitant]
  6. ROSUVASTATIN [Concomitant]
  7. CHOLECALCIFERO 1 [Concomitant]

REACTIONS (4)
  - Dizziness [None]
  - Hypotension [None]
  - Haemodynamic instability [None]
  - Small intestinal haemorrhage [None]
